FAERS Safety Report 9682254 (Version 2)
Quarter: 2013Q4

REPORT INFORMATION
  Report Type: Report from Study
  Country: ZA (occurrence: ZA)
  Receive Date: 20131112
  Receipt Date: 20131202
  Transmission Date: 20140711
  Serious: Yes (Other)
  Sender: FDA-Public Use
  Company Number: ZA-ROCHE-1300798

PATIENT
  Age: 77 Year
  Sex: Female

DRUGS (3)
  1. RANIBIZUMAB [Suspect]
     Indication: AGE-RELATED MACULAR DEGENERATION
     Route: 050
     Dates: start: 20130412
  2. RANIBIZUMAB [Suspect]
     Route: 050
     Dates: start: 20120524
  3. RANIBIZUMAB [Suspect]
     Route: 050
     Dates: start: 20120621

REACTIONS (5)
  - Subretinal fluid [Unknown]
  - Retinal oedema [Unknown]
  - Macular oedema [Unknown]
  - Choroidal neovascularisation [Unknown]
  - Visual acuity reduced [Unknown]
